FAERS Safety Report 19958219 (Version 1)
Quarter: 2021Q4

REPORT INFORMATION
  Report Type: Spontaneous
  Country: IN (occurrence: IN)
  Receive Date: 20211015
  Receipt Date: 20211015
  Transmission Date: 20220303
  Serious: Yes (Hospitalization, Other)
  Sender: FDA-Public Use
  Company Number: IN-MLMSERVICE-20211001-3140109-1

PATIENT
  Age: 3 Year
  Sex: Female
  Weight: 15 kg

DRUGS (1)
  1. BUPIVACAINE HYDROCHLORIDE [Suspect]
     Active Substance: BUPIVACAINE HYDROCHLORIDE
     Indication: General anaesthesia
     Route: 008

REACTIONS (4)
  - Neurotoxicity [Recovered/Resolved]
  - Device dislocation [Recovered/Resolved]
  - Monoplegia [Recovered/Resolved]
  - Sensory loss [Recovered/Resolved]
